FAERS Safety Report 7480857-0 (Version None)
Quarter: 2011Q2

REPORT INFORMATION
  Report Type: 
  Country: None (occurrence: None)
  Receive Date: 20110516
  Receipt Date: 20110508
  Transmission Date: 20111010
  Serious: Yes (Death, Hospitalization, Other)
  Sender: FDA-Public Use
  Company Number: PHEH2009US11085

PATIENT
  Sex: Female

DRUGS (32)
  1. FENTANYL [Concomitant]
  2. SENNOSIDE [Concomitant]
  3. PAXIL [Concomitant]
  4. ADRIAMYCIN PFS [Concomitant]
  5. POTASSIUM CHLORIDE [Concomitant]
  6. TORADOL [Concomitant]
  7. METOCLOPRAMIDE [Concomitant]
  8. CIPROFLOXACIN [Concomitant]
  9. MAGNESIUM CITRATE [Concomitant]
  10. DULCOLAX [Concomitant]
  11. HERCEPTIN [Concomitant]
  12. MEGACE [Concomitant]
  13. MILK OF MAGNESIA TAB [Concomitant]
  14. DILAUDID [Concomitant]
  15. ATIVAN [Concomitant]
  16. CYTOXAN [Concomitant]
  17. TAXOL [Concomitant]
  18. ANASTROZOLE [Concomitant]
  19. ACETAMINOPHEN [Concomitant]
  20. INAPSINE [Concomitant]
  21. ARIMIDEX [Concomitant]
  22. ZOMETA [Suspect]
     Indication: BREAST CANCER METASTATIC
     Route: 042
     Dates: end: 20090601
  23. MAALOX                                  /USA/ [Concomitant]
  24. CARBOPLATIN [Concomitant]
  25. MAGNESIUM SULFATE [Concomitant]
  26. DEXAMETHASONE [Concomitant]
  27. METAMUCIL-2 [Concomitant]
  28. DOCUSATE [Concomitant]
  29. LACTULOSE [Concomitant]
  30. VICODIN [Concomitant]
  31. PANTOPRAZOLE [Concomitant]
  32. AMBIEN [Concomitant]

REACTIONS (58)
  - MOUTH ULCERATION [None]
  - OSTEOSCLEROSIS [None]
  - LATEX ALLERGY [None]
  - ERYTHEMA [None]
  - PLEURAL EFFUSION [None]
  - OBESITY [None]
  - OSTEONECROSIS OF JAW [None]
  - ELECTROLYTE IMBALANCE [None]
  - GASTROOESOPHAGEAL REFLUX DISEASE [None]
  - OSTEOARTHRITIS [None]
  - SINUSITIS [None]
  - COUGH [None]
  - ASCITES [None]
  - SPINAL COLUMN STENOSIS [None]
  - VOMITING [None]
  - PELVIC PAIN [None]
  - HYPOKALAEMIA [None]
  - DEVICE RELATED INFECTION [None]
  - ANXIETY [None]
  - IMPAIRED HEALING [None]
  - INSOMNIA [None]
  - NAUSEA [None]
  - DEEP VEIN THROMBOSIS [None]
  - DEPRESSION [None]
  - URINARY TRACT INFECTION [None]
  - PYREXIA [None]
  - METASTASES TO LUNG [None]
  - HEPATIC STEATOSIS [None]
  - INJURY [None]
  - ANHEDONIA [None]
  - UPPER RESPIRATORY TRACT INFECTION [None]
  - THYROID DISORDER [None]
  - METASTASES TO LIVER [None]
  - METASTASES TO OVARY [None]
  - PAIN [None]
  - BONE DISORDER [None]
  - IMPETIGO [None]
  - DISEASE PROGRESSION [None]
  - DEHYDRATION [None]
  - TYPE 2 DIABETES MELLITUS [None]
  - ABDOMINAL PAIN [None]
  - DYSPEPSIA [None]
  - ADNEXA UTERI MASS [None]
  - THROMBOCYTOSIS [None]
  - BACK PAIN [None]
  - SERRATIA SEPSIS [None]
  - HYPERTENSION [None]
  - DEATH [None]
  - PANCYTOPENIA [None]
  - INGROWING NAIL [None]
  - NEOPLASM MALIGNANT [None]
  - PLEURAL FIBROSIS [None]
  - PNEUMONIA [None]
  - OTITIS EXTERNA [None]
  - CONSTIPATION [None]
  - HYPONATRAEMIA [None]
  - RESPIRATORY FAILURE [None]
  - FEBRILE NEUTROPENIA [None]
